FAERS Safety Report 4376450-9 (Version None)
Quarter: 2004Q2

REPORT INFORMATION
  Report Type: 
  Country: None (occurrence: None)
  Receive Date: 20040610
  Receipt Date: 20040610
  Transmission Date: 20050107
  Serious: No
  Sender: FDA-Public Use
  Company Number: None

PATIENT
  Age: 17 Year
  Sex: Female

DRUGS (1)
  1. TIBIALIS TENDON POSTERIOR [Suspect]

REACTIONS (2)
  - ASPERGILLOSIS [None]
  - GRAFT COMPLICATION [None]
